FAERS Safety Report 5473530-1 (Version None)
Quarter: 2007Q3

REPORT INFORMATION
  Report Type: 
  Country: None (occurrence: None)
  Receive Date: 20070831
  Receipt Date: 20070517
  Transmission Date: 20080115
  Serious: No
  Sender: FDA-Public Use
  Company Number: 241904

PATIENT
  Age: 80 Year
  Sex: Female

DRUGS (5)
  1. LUCENTIS [Suspect]
     Indication: MACULAR DEGENERATION
     Dosage: INTRAVITREAL
     Route: 050
     Dates: start: 20060701
  2. NADOLOL [Concomitant]
  3. NIFEDIPINE [Concomitant]
  4. QUESTRAN (CHOLESTYRAMINE RESIN) [Concomitant]
  5. EYE VITAMIN (VITAMINS NOS) [Concomitant]

REACTIONS (2)
  - CORNEAL ABRASION [None]
  - EYE PAIN [None]
